FAERS Safety Report 9304487 (Version 1)
Quarter: 2013Q2

REPORT INFORMATION
  Report Type: Report from Study
  Country: HU (occurrence: HU)
  Receive Date: 20130523
  Receipt Date: 20130523
  Transmission Date: 20140414
  Serious: Yes (Other)
  Sender: FDA-Public Use
  Company Number: HU-ROCHE-1208077

PATIENT
  Sex: Female

DRUGS (3)
  1. XELODA [Suspect]
     Indication: COLORECTAL CANCER
     Route: 048
     Dates: start: 20130220
  2. XELODA [Suspect]
     Route: 048
  3. IRINOTECAN [Concomitant]
     Indication: COLORECTAL CANCER

REACTIONS (2)
  - Alopecia [Unknown]
  - Disease progression [Unknown]
